FAERS Safety Report 8605081-7 (Version None)
Quarter: 2012Q3

REPORT INFORMATION
  Report Type: 
  Country: None (occurrence: None)
  Receive Date: 20120808
  Receipt Date: 20120808
  Transmission Date: 20120928
  Serious: Yes (Hospitalization)
  Sender: FDA-Public Use
  Company Number: None

PATIENT
  Sex: Male
  Weight: 129.8 kg

DRUGS (1)
  1. PRAVASTATIN [Suspect]
     Dosage: PO
     Route: 048
     Dates: start: 20120328, end: 20120721

REACTIONS (4)
  - HEPATIC STEATOSIS [None]
  - RHABDOMYOLYSIS [None]
  - RENAL FAILURE ACUTE [None]
  - MUSCLE INJURY [None]
